FAERS Safety Report 4821764-9 (Version None)
Quarter: 2005Q4

REPORT INFORMATION
  Report Type: 
  Country: None (occurrence: None)
  Receive Date: 20051103
  Receipt Date: 20051019
  Transmission Date: 20060501
  Serious: Yes (Hospitalization)
  Sender: FDA-Public Use
  Company Number: 2005S1010296

PATIENT
  Age: 89 Year
  Sex: Male
  Weight: 77.1115 kg

DRUGS (21)
  1. FENTANYL TRANSDERMAL SYSTEM [Suspect]
     Indication: BACK PAIN
     Dosage: 100 MCG/HR; TDER
     Route: 062
     Dates: end: 20050904
  2. FENTANYL TRANSDERMAL SYSTEM [Suspect]
     Indication: SPINAL COMPRESSION FRACTURE
     Dosage: 100 MCG/HR; TDER
     Route: 062
     Dates: end: 20050904
  3. GLYCERYL TRINITRATE [Concomitant]
  4. DIGOXIN [Concomitant]
  5. TORSEMIDE [Concomitant]
  6. POTASSIUM CHLORIDE [Concomitant]
  7. ISOSRBIDE MONONITRATE [Concomitant]
  8. RAMIPRIL [Concomitant]
  9. ASPIRIN [Concomitant]
  10. MESALAMINE [Concomitant]
  11. GUAIFENESIN [Concomitant]
  12. TAMSULOSIN HYDROCHLORIDE [Concomitant]
  13. BISOPROLOL FUMARATE [Concomitant]
  14. SALBUTAMOL [Concomitant]
  15. FERROUS SULFATE EXSICCATED [Concomitant]
  16. CYANOCOBALMIN-TANNIN-COMPLEX [Concomitant]
  17. ASCORBIC ACID/TOCOPHERYL ACETATE/RETINOL/ZINC/CALCIUM/VITAMINS NOS/MIN [Concomitant]
  18. CALCIUM CITRATE [Concomitant]
  19. ALENDRONATE SODIUM [Concomitant]
  20. SENNA [Concomitant]
  21. OXYGEN [Concomitant]

REACTIONS (5)
  - CEREBROVASCULAR ACCIDENT [None]
  - CHEST PAIN [None]
  - INCORRECT DOSE ADMINISTERED [None]
  - MYOCARDIAL INFARCTION [None]
  - SOMNOLENCE [None]
